FAERS Safety Report 14110992 (Version 1)
Quarter: 2017Q4

REPORT INFORMATION
  Report Type: Spontaneous
  Country: None (occurrence: US)
  Receive Date: 20171020
  Receipt Date: 20171020
  Transmission Date: 20180321
  Serious: Yes (Other)
  Sender: FDA-Public Use
  Company Number: US-SAGE PRODUCTS, LLC-2030889

PATIENT
  Age: 78 Year
  Sex: Male

DRUGS (3)
  1. ANTIPLAQUE SOLUTION [Suspect]
     Active Substance: CETYLPYRIDINIUM CHLORIDE
     Route: 048
     Dates: start: 20170719
  2. MOUTH MOISTURIZER [Suspect]
     Active Substance: UNSPECIFIED INGREDIENT
     Route: 002
     Dates: start: 20170719
  3. ANTISEPTIC ORAL RINSE [Suspect]
     Active Substance: CETYLPYRIDINIUM CHLORIDE
     Indication: DENTAL DISORDER PROPHYLAXIS
     Route: 048
     Dates: start: 20170717

REACTIONS (2)
  - Bacterial infection [Recovered/Resolved]
  - Pneumonia [Recovered/Resolved]

NARRATIVE: CASE EVENT DATE: 20170724
